FAERS Safety Report 5981594-1 (Version None)
Quarter: 2008Q4

REPORT INFORMATION
  Report Type: 
  Country: None (occurrence: None)
  Receive Date: 20081202
  Receipt Date: 20081120
  Transmission Date: 20090506
  Serious: Yes (Hospitalization)
  Sender: FDA-Public Use
  Company Number: 2008-04371

PATIENT
  Age: 47 Year
  Sex: Male
  Weight: 84.8 kg

DRUGS (4)
  1. VELCADE [Suspect]
     Indication: MANTLE CELL LYMPHOMA
     Dosage: 1 MG/M2, INTRAVENOUS
     Route: 042
     Dates: start: 20080806, end: 20081107
  2. RITUXIMA B              INJECTION, 375MG/M2 [Suspect]
     Indication: MANTLE CELL LYMPHOMA
     Dosage: 35 MG/M2
     Route: 042
     Dates: start: 20080805, end: 20081107
  3. CYTARABINE [Suspect]
     Indication: MANTLE CELL LYMPHOMA
     Dosage: 3.96 G, INTRAVENOUS
     Route: 042
     Dates: start: 20080907, end: 20081111
  4. METHOTREXATE [Suspect]
     Indication: MANTLE CELL LYMPHOMA
     Dosage: 600 MG/MG, INTRAVENOUS
     Route: 042
     Dates: start: 20080906, end: 20081108

REACTIONS (4)
  - HEART RATE INCREASED [None]
  - INFECTION [None]
  - PLATELET COUNT DECREASED [None]
  - RESPIRATORY RATE INCREASED [None]
